FAERS Safety Report 14534696 (Version 1)
Quarter: 2018Q1

REPORT INFORMATION
  Report Type: Report from Study
  Country: GB (occurrence: GB)
  Receive Date: 20180215
  Receipt Date: 20180215
  Transmission Date: 20180509
  Serious: Yes (Other)
  Sender: FDA-Public Use
  Company Number: GB-TEVA-2018-GB-855346

PATIENT
  Age: 68 Year
  Sex: Male

DRUGS (1)
  1. QVAR EASI-BREATHE [Suspect]
     Active Substance: BECLOMETHASONE DIPROPIONATE
     Dosage: TAKEN MORE THAN SIX MONTHS
     Route: 055

REACTIONS (1)
  - Asthma [Unknown]
